FAERS Safety Report 5925153-5 (Version None)
Quarter: 2008Q4

REPORT INFORMATION
  Report Type: 
  Country: None (occurrence: None)
  Receive Date: 20081021
  Receipt Date: 20081013
  Transmission Date: 20090506
  Serious: Yes (Other)
  Sender: FDA-Public Use
  Company Number: GB-ABBOTT-08P-167-0481593-00

PATIENT
  Age: 60 Year
  Sex: Male
  Weight: 181 kg

DRUGS (1)
  1. REDUCTIL [Suspect]
     Indication: OBESITY
     Route: 048
     Dates: start: 20071201, end: 20080501

REACTIONS (3)
  - FEELING ABNORMAL [None]
  - HYPERHIDROSIS [None]
  - PALPITATIONS [None]
